FAERS Safety Report 5228006-3 (Version None)
Quarter: 2007Q1

REPORT INFORMATION
  Report Type: 
  Country: None (occurrence: None)
  Receive Date: 20061205
  Receipt Date: 20061017
  Transmission Date: 20070707
  Serious: No
  Sender: FDA-Public Use
  Company Number: PHEH2006US12994

PATIENT
  Age: 76 Year
  Sex: Female

DRUGS (1)
  1. EXJADE [Suspect]
     Indication: MYELODYSPLASTIC SYNDROME
     Dosage: 1000 MG, QD, ORAL
     Route: 048
     Dates: start: 20061004, end: 20061016

REACTIONS (3)
  - ERYTHEMA [None]
  - RASH PRURITIC [None]
  - SWELLING FACE [None]
